FAERS Safety Report 6711766-X (Version None)
Quarter: 2010Q2

REPORT INFORMATION
  Report Type: 
  Country: None (occurrence: None)
  Receive Date: 20100505
  Receipt Date: 20100215
  Transmission Date: 20101027
  Serious: Yes (Hospitalization)
  Sender: FDA-Public Use
  Company Number: B0611221A

PATIENT
  Sex: Female

DRUGS (2)
  1. MALARONE [Suspect]
     Indication: MALARIA PROPHYLAXIS
     Dosage: 1TAB PER DAY
     Route: 065
     Dates: start: 20091101
  2. ANTIHYPERTENSIVES [Concomitant]

REACTIONS (6)
  - DRY MOUTH [None]
  - ERYTHEMA MULTIFORME [None]
  - HEART RATE INCREASED [None]
  - PYREXIA [None]
  - RASH MACULAR [None]
  - SKIN DISCOLOURATION [None]
